FAERS Safety Report 4513434-1 (Version None)
Quarter: 2004Q4

REPORT INFORMATION
  Report Type: 
  Country: None (occurrence: None)
  Receive Date: 20041130
  Receipt Date: 20041004
  Transmission Date: 20050328
  Serious: No
  Sender: FDA-Public Use
  Company Number: US-BRISTOL-MYERS SQUIBB COMPANY-12721049

PATIENT
  Age: 73 Year
  Sex: Male
  Weight: 84 kg

DRUGS (6)
  1. ERBITUX [Suspect]
     Indication: COLON CANCER METASTATIC
     Dosage: SINCE 04-AUG-2004 - 200 MG/M2
     Route: 042
     Dates: start: 20040407, end: 20040407
  2. ATENOLOL [Concomitant]
  3. FLUOROURACIL [Concomitant]
  4. LIBRAX [Concomitant]
  5. IRINOTECAN [Concomitant]
     Dosage: SINCE 04-AUG-2004 - 260 MG
  6. MULTIVITAMIN [Concomitant]

REACTIONS (3)
  - EPISTAXIS [None]
  - RASH [None]
  - SKIN BLEEDING [None]
